FAERS Safety Report 9582941 (Version 1)
Quarter: 2013Q4

REPORT INFORMATION
  Report Type: Spontaneous
  Country: US (occurrence: US)
  Receive Date: 20131002
  Receipt Date: 20131002
  Transmission Date: 20140711
  Serious: Yes (Hospitalization)
  Sender: FDA-Public Use
  Company Number: US-AMGEN-USASP2013044025

PATIENT
  Age: 85 Year
  Sex: Female
  Weight: 76.64 kg

DRUGS (10)
  1. ENBREL [Suspect]
     Indication: PRODUCT USED FOR UNKNOWN INDICATION
     Dosage: 50 MG, QWK
     Route: 058
  2. COUMADIN                           /00014802/ [Concomitant]
     Dosage: 10 MG, UNK
     Route: 048
  3. TYLENOL                            /00020001/ [Concomitant]
     Dosage: 500 MG, UNK
     Route: 048
  4. METOPROLOL [Concomitant]
     Dosage: 100 MG, ER
     Route: 048
  5. FUROSEMIDE [Concomitant]
     Dosage: 20 MG, UNK
     Route: 048
  6. HYZAAR [Concomitant]
     Dosage: 50-12.5
     Route: 048
  7. GABAPENTIN [Concomitant]
     Dosage: 100 MG, UNK
     Route: 048
  8. COD LIVER OIL [Concomitant]
     Dosage: UNK
     Route: 048
  9. LEVOTHYROXIN [Concomitant]
     Dosage: 100 MUG, UNK
     Route: 048
  10. CRESTOR [Concomitant]
     Dosage: 5 MG, UNK
     Route: 048

REACTIONS (1)
  - Cardiac failure congestive [Unknown]
